FAERS Safety Report 10965606 (Version 1)
Quarter: 2015Q1

REPORT INFORMATION
  Report Type: Spontaneous
  Country: CO (occurrence: CO)
  Receive Date: 20150330
  Receipt Date: 20150330
  Transmission Date: 20150721
  Serious: Yes (Hospitalization)
  Sender: FDA-Public Use
  Company Number: CO-JNJFOC-20150313768

PATIENT
  Age: 24 Year
  Sex: Male
  Weight: 79 kg

DRUGS (1)
  1. INVEGA SUSTENNA [Suspect]
     Active Substance: PALIPERIDONE PALMITATE
     Indication: SCHIZOPHRENIA
     Route: 030
     Dates: start: 20150209

REACTIONS (3)
  - Aggression [Not Recovered/Not Resolved]
  - Anxiety disorder [Not Recovered/Not Resolved]
  - Papilloma viral infection [Not Recovered/Not Resolved]

NARRATIVE: CASE EVENT DATE: 20150313
